FAERS Safety Report 21494235 (Version 1)
Quarter: 2022Q4

REPORT INFORMATION
  Report Type: Spontaneous
  Country: DE (occurrence: DE)
  Receive Date: 20221021
  Receipt Date: 20221021
  Transmission Date: 20230113
  Serious: Yes (Hospitalization)
  Sender: FDA-Public Use
  Company Number: DE-ADRED-06590-04

PATIENT
  Age: 63 Year
  Sex: Male
  Weight: 95 kg

DRUGS (11)
  1. CARBOPLATIN [Suspect]
     Active Substance: CARBOPLATIN
     Indication: Product used for unknown indication
     Dosage: 311.1 MG,  ACCORDING TO PLAN, SOLUTION FOR INJECTION/INFUSION
     Route: 042
  2. GEMCITABINE [Suspect]
     Active Substance: GEMCITABINE
     Indication: Product used for unknown indication
     Dosage: 2472 MG, ACCORDING TO PLAN, SOLUTION FOR INJECTION/INFUSION
     Route: 042
  3. CALCITRIOL [Concomitant]
     Active Substance: CALCITRIOL
     Indication: Product used for unknown indication
     Dosage: 0.25 UG, 2-0-0-0, CAPSULES
     Route: 048
  4. SEMAGLUTIDE [Concomitant]
     Active Substance: SEMAGLUTIDE
     Indication: Product used for unknown indication
     Dosage: 2 MG, ACCORDING TO PLAN, PREFILLED SYRINGES
     Route: 058
  5. HERBALS\PLANTAGO OVATA LEAF [Concomitant]
     Active Substance: HERBALS\PLANTAGO OVATA LEAF
     Indication: Product used for unknown indication
     Dosage: 3.25 G, 1-0-1-0, GSE?ISPAGHULA (FLEA SEEDS)
     Route: 048
  6. PANTOPRAZOLE [Concomitant]
     Active Substance: PANTOPRAZOLE
     Indication: Product used for unknown indication
     Dosage: 40 MG, 1-0-0-0, PROLONGED RELEASE TABLETS
     Route: 048
  7. LOPERAMIDE HYDROCHLORIDE [Concomitant]
     Active Substance: LOPERAMIDE HYDROCHLORIDE
     Indication: Product used for unknown indication
     Dosage: 2 MG, 2-2-2-0, CAPSULES
     Route: 048
  8. ASPIRIN [Concomitant]
     Active Substance: ASPIRIN
     Indication: Product used for unknown indication
     Dosage: 100 MG, 1-0-0-0, TABLETS
     Route: 048
  9. DALTEPARIN [Concomitant]
     Active Substance: DALTEPARIN
     Indication: Product used for unknown indication
     Dosage: 5000 IE, 0-0-1-0, PREFILLED SYRINGES
     Route: 058
  10. PREGABALIN [Concomitant]
     Active Substance: PREGABALIN
     Indication: Product used for unknown indication
     Dosage: 150 MG, 0-0-1-0, CAPSULES
     Route: 048
  11. TORSEMIDE [Concomitant]
     Active Substance: TORSEMIDE
     Indication: Product used for unknown indication
     Dosage: 10 MG, 2-0-0-0, TABLETS
     Route: 048

REACTIONS (4)
  - Pyrexia [None]
  - Urosepsis [None]
  - Chills [None]
  - Pain [None]
